FAERS Safety Report 25748332 (Version 2)
Quarter: 2025Q4

REPORT INFORMATION
  Report Type: Report from Study
  Country: US (occurrence: US)
  Receive Date: 20250902
  Receipt Date: 20251015
  Transmission Date: 20260118
  Serious: Yes (Other)
  Sender: ABBVIE
  Company Number: US-ABBVIE-6323670

PATIENT
  Age: 63 Year
  Sex: Female

DRUGS (5)
  1. RINVOQ [Suspect]
     Active Substance: UPADACITINIB
     Indication: Eczema
     Dosage: FORM STRENGTH 15 MG
     Route: 048
     Dates: start: 202502, end: 20250604
  2. RINVOQ [Suspect]
     Active Substance: UPADACITINIB
     Indication: Eczema
     Dosage: FORM STRENGTH 15 MG,?LAST ADMIN DATE:2025
     Route: 048
     Dates: start: 20250606
  3. RINVOQ [Suspect]
     Active Substance: UPADACITINIB
     Indication: Eczema
     Dosage: FORM STRENGTH 15 MILLIGRAMS,?FIRST ADMIN DATE: 2025
     Route: 048
     Dates: end: 202508
  4. RINVOQ [Suspect]
     Active Substance: UPADACITINIB
     Indication: Eczema
     Dosage: LAST ADMIN TEST:2025
     Route: 048
     Dates: start: 2025, end: 2025
  5. CEPHALEXIN [Concomitant]
     Active Substance: CEPHALEXIN
     Indication: Product used for unknown indication
     Route: 048
     Dates: start: 20250823

REACTIONS (9)
  - Dermal cyst [Unknown]
  - Pruritus [Unknown]
  - Dry skin [Unknown]
  - Skin weeping [Unknown]
  - Swelling face [Recovered/Resolved]
  - Acne [Unknown]
  - Rash [Unknown]
  - Infection [Unknown]
  - Adverse drug reaction [Not Recovered/Not Resolved]

NARRATIVE: CASE EVENT DATE: 20250101
